FAERS Safety Report 18474665 (Version 4)
Quarter: 2020Q4

REPORT INFORMATION
  Report Type: Spontaneous
  Country: CN (occurrence: CN)
  Receive Date: 20201106
  Receipt Date: 20201230
  Transmission Date: 20210114
  Serious: Yes (Other)
  Sender: FDA-Public Use
  Company Number: NVSC2020CN292707

PATIENT
  Age: 56 Year
  Sex: Female

DRUGS (4)
  1. DIOVAN [Suspect]
     Active Substance: VALSARTAN
     Dosage: 80 MG, QD (1 PILL AT 9 AM)
     Route: 048
     Dates: start: 202011
  2. DIOVAN [Suspect]
     Active Substance: VALSARTAN
     Indication: HYPERTENSION
     Dosage: 80 MG, QD (1 PILL AT 7AM)
     Route: 048
     Dates: start: 202008
  3. HYDROCHLOROTHIAZIDE,VALSARTAN [Suspect]
     Active Substance: HYDROCHLOROTHIAZIDE\VALSARTAN
     Indication: PRODUCT USED FOR UNKNOWN INDICATION
     Dosage: UNK
     Route: 065
  4. DIOVAN [Suspect]
     Active Substance: VALSARTAN
     Dosage: 80 MG, QD (1 PILL AT 7 AM)
     Route: 048
     Dates: start: 202009

REACTIONS (7)
  - Abdominal pain upper [Recovered/Resolved]
  - Product quality issue [Unknown]
  - Blood pressure systolic increased [Recovering/Resolving]
  - Sinusitis [Recovered/Resolved]
  - Blood pressure decreased [Recovering/Resolving]
  - Drug ineffective [Unknown]
  - Blood pressure increased [Recovering/Resolving]
